FAERS Safety Report 13297472 (Version 1)
Quarter: 2017Q1

REPORT INFORMATION
  Report Type: Spontaneous
  Country: US (occurrence: US)
  Receive Date: 20170304
  Receipt Date: 20170304
  Transmission Date: 20170428
  Serious: Yes (Hospitalization, Disabling, Other)
  Sender: FDA-Public Use
  Company Number: None

PATIENT
  Age: 47 Year
  Sex: Female
  Weight: 112.5 kg

DRUGS (8)
  1. HALDOL [Suspect]
     Active Substance: HALOPERIDOL
     Indication: BIPOLAR DISORDER
     Dosage: ?          QUANTITY:1 TABLET(S);?
     Route: 048
  2. MULTIVITAMIN [Concomitant]
     Active Substance: VITAMINS
  3. HALDOL [Suspect]
     Active Substance: HALOPERIDOL
     Indication: SCHIZOAFFECTIVE DISORDER
     Dosage: ?          QUANTITY:1 TABLET(S);?
     Route: 048
  4. HALDOL DECANOATE [Suspect]
     Active Substance: HALOPERIDOL DECANOATE
     Indication: BIPOLAR DISORDER
     Dosage: ?          OTHER STRENGTH:MG/ML;OTHER FREQUENCY:EVERY 3 WEEKS;?
     Route: 030
  5. DEPAKOTE [Concomitant]
     Active Substance: DIVALPROEX SODIUM
  6. LEVOTHYROXINE. [Concomitant]
     Active Substance: LEVOTHYROXINE
  7. METFORMIN [Concomitant]
     Active Substance: METFORMIN HYDROCHLORIDE
  8. HALDOL DECANOATE [Suspect]
     Active Substance: HALOPERIDOL DECANOATE
     Indication: SCHIZOAFFECTIVE DISORDER
     Dosage: ?          OTHER STRENGTH:MG/ML;OTHER FREQUENCY:EVERY 3 WEEKS;?
     Route: 030

REACTIONS (4)
  - Drug dependence [None]
  - Hallucination [None]
  - Patient restraint [None]
  - Abnormal behaviour [None]

NARRATIVE: CASE EVENT DATE: 20170303
